FAERS Safety Report 8399961-8 (Version None)
Quarter: 2012Q2

REPORT INFORMATION
  Report Type: 
  Country: None (occurrence: None)
  Receive Date: 20120531
  Receipt Date: 20120524
  Transmission Date: 20120825
  Serious: Yes (Other)
  Sender: FDA-Public Use
  Company Number: US-BAYER-2012-022414

PATIENT
  Age: 17 Year
  Sex: Male
  Weight: 66.213 kg

DRUGS (1)
  1. ALEVE (CAPLET) [Suspect]
     Indication: HEADACHE
     Dosage: 440 MG, ONCE
     Route: 048
     Dates: start: 20120303, end: 20120303

REACTIONS (4)
  - INSOMNIA [None]
  - RESPIRATORY TRACT CONGESTION [None]
  - TINNITUS [None]
  - HAEMORRHAGE [None]
